FAERS Safety Report 25542620 (Version 1)
Quarter: 2025Q3

REPORT INFORMATION
  Report Type: Spontaneous
  Country: US (occurrence: US)
  Receive Date: 20250711
  Receipt Date: 20250711
  Transmission Date: 20251021
  Serious: Yes (Other)
  Sender: ABBVIE
  Company Number: US-ABBVIE-6361469

PATIENT
  Age: 63 Year
  Sex: Female

DRUGS (1)
  1. REFRESH CLASSIC [Suspect]
     Active Substance: POLYVINYL ALCOHOL\POVIDONE
     Indication: Dry eye

REACTIONS (3)
  - Blindness [Unknown]
  - Mobility decreased [Unknown]
  - Diabetes mellitus [Unknown]
